FAERS Safety Report 20698606 (Version 1)
Quarter: 2022Q2

REPORT INFORMATION
  Report Type: Spontaneous
  Country: US (occurrence: US)
  Receive Date: 20220412
  Receipt Date: 20220412
  Transmission Date: 20220721
  Serious: No
  Sender: FDA-Public Use
  Company Number: US-BAUSCH-BL-2022-008399

PATIENT
  Sex: Female

DRUGS (1)
  1. ATROPINE SULFATE [Suspect]
     Active Substance: ATROPINE SULFATE
     Indication: Hypersensitivity
     Dosage: SINGLE
     Route: 047
     Dates: start: 20220331, end: 20220331

REACTIONS (2)
  - Mydriasis [Unknown]
  - Expired product administered [Unknown]

NARRATIVE: CASE EVENT DATE: 20220331
